FAERS Safety Report 22287502 (Version 4)
Quarter: 2023Q4

REPORT INFORMATION
  Report Type: Report from Study
  Country: JP (occurrence: JP)
  Receive Date: 20230505
  Receipt Date: 20231031
  Transmission Date: 20240110
  Serious: Yes (Hospitalization)
  Sender: FDA-Public Use
  Company Number: JP-JNJJAKJPN-J23033177

PATIENT
  Age: 53 Year
  Sex: Female
  Weight: 61.5 kg

DRUGS (14)
  1. DARATUMUMAB [Suspect]
     Active Substance: DARATUMUMAB
     Indication: Plasma cell myeloma
     Dosage: DOSE UNKNOWN
     Route: 058
     Dates: start: 20221214
  2. DARATUMUMAB [Suspect]
     Active Substance: DARATUMUMAB
     Route: 058
     Dates: start: 20230315, end: 20230330
  3. REVLIMID [Suspect]
     Active Substance: LENALIDOMIDE
     Indication: Plasma cell myeloma
     Dosage: DOSE UNKNOWN
     Route: 048
     Dates: start: 20221214
  4. REVLIMID [Suspect]
     Active Substance: LENALIDOMIDE
     Route: 048
     Dates: start: 20230315, end: 20230404
  5. LENADEX [Suspect]
     Active Substance: DEXAMETHASONE ACETATE
     Indication: Plasma cell myeloma
     Dosage: DOSE UNKNOWN
     Route: 048
     Dates: start: 20221214
  6. LENADEX [Suspect]
     Active Substance: DEXAMETHASONE ACETATE
     Indication: Plasma cell myeloma
     Route: 048
     Dates: start: 20230315, end: 20230405
  7. CALCIUM CARBONATE\CHOLECALCIFEROL\MAGNESIUM CARBONATE [Concomitant]
     Active Substance: CALCIUM CARBONATE\CHOLECALCIFEROL\MAGNESIUM CARBONATE
     Indication: Prophylaxis
     Route: 048
     Dates: start: 20230118
  8. MIROGABALIN BESYLATE [Concomitant]
     Active Substance: MIROGABALIN BESYLATE
     Indication: Pain
     Route: 048
     Dates: start: 20221206
  9. HYDROMORPHONE HYDROCHLORIDE [Concomitant]
     Active Substance: HYDROMORPHONE HYDROCHLORIDE
     Indication: Pain
     Route: 048
     Dates: start: 20221208
  10. SULFAMETHOXAZOLE\TRIMETHOPRIM [Concomitant]
     Active Substance: SULFAMETHOXAZOLE\TRIMETHOPRIM
     Indication: Infection prophylaxis
     Route: 048
     Dates: start: 20221214
  11. ACYCLOVIR [Concomitant]
     Active Substance: ACYCLOVIR
     Indication: Infection prophylaxis
     Route: 048
     Dates: start: 20230118
  12. ASPIRIN [Concomitant]
     Active Substance: ASPIRIN
     Indication: Prophylaxis
     Route: 048
     Dates: start: 20221214, end: 20230421
  13. LANSOPRAZOLE [Concomitant]
     Active Substance: LANSOPRAZOLE
     Indication: Gastritis prophylaxis
     Route: 048
     Dates: start: 20221214, end: 20230421
  14. FERRIC SODIUM CITRATE [Concomitant]
     Active Substance: FERRIC SODIUM CITRATE
     Indication: Iron deficiency anaemia
     Route: 048
     Dates: start: 20221214

REACTIONS (5)
  - Cholecystitis [Recovering/Resolving]
  - Vomiting [Unknown]
  - Pyrexia [Unknown]
  - Decreased appetite [Unknown]
  - Myelosuppression [Unknown]

NARRATIVE: CASE EVENT DATE: 20230416
